FAERS Safety Report 6032212-8 (Version None)
Quarter: 2009Q1

REPORT INFORMATION
  Report Type: 
  Country: None (occurrence: None)
  Receive Date: 20090108
  Receipt Date: 20090105
  Transmission Date: 20090719
  Serious: Yes (Death)
  Sender: FDA-Public Use
  Company Number: ZA-B.I. PHARMACEUTICALS,INC./RIDGEFIELD-2009-BP-00025BP

PATIENT
  Age: 28 Year
  Sex: Female

DRUGS (3)
  1. VIRAMUNE [Suspect]
     Indication: PROPHYLAXIS AGAINST HIV INFECTION
     Dosage: 400MG
     Route: 048
     Dates: start: 20080401, end: 20081207
  2. COMBIVIR [Suspect]
     Indication: PROPHYLAXIS AGAINST HIV INFECTION
     Route: 048
     Dates: start: 20080401, end: 20081207
  3. FUROSEMIDE [Concomitant]
     Dosage: 160MG

REACTIONS (1)
  - CARDIAC ARREST [None]
